FAERS Safety Report 15928640 (Version 2)
Quarter: 2019Q1

REPORT INFORMATION
  Report Type: Spontaneous
  Country: US (occurrence: US)
  Receive Date: 20190206
  Receipt Date: 20190214
  Transmission Date: 20190417
  Serious: Yes (Other)
  Sender: FDA-Public Use
  Company Number: US-ASTRAZENECA-2018SF21495

PATIENT
  Age: 11131 Day
  Sex: Female

DRUGS (12)
  1. NEXIUM [Suspect]
     Active Substance: ESOMEPRAZOLE MAGNESIUM
     Route: 048
     Dates: start: 2006, end: 2014
  2. DESYREL [Concomitant]
     Active Substance: TRAZODONE HYDROCHLORIDE
     Route: 048
  3. NEURONTIN [Concomitant]
     Active Substance: GABAPENTIN
     Route: 048
  4. PREDNISONE. [Concomitant]
     Active Substance: PREDNISONE
  5. DRISDOL [Concomitant]
     Active Substance: ERGOCALCIFEROL
     Dosage: 50,000 UNITS ONCE A WEEK
  6. PROCRIT [Concomitant]
     Active Substance: ERYTHROPOIETIN
     Dosage: 20000 UNITS IV ON DIALYSIS DAYS
  7. CYMBALTA [Concomitant]
     Active Substance: DULOXETINE HYDROCHLORIDE
     Route: 048
  8. SYNTHROID [Concomitant]
     Active Substance: LEVOTHYROXINE SODIUM
     Route: 048
  9. NEXIUM [Suspect]
     Active Substance: ESOMEPRAZOLE MAGNESIUM
     Dosage: 40.0MG UNKNOWN
     Route: 048
     Dates: start: 20110204
  10. TOPROL XL [Concomitant]
     Active Substance: METOPROLOL SUCCINATE
     Route: 048
  11. ADVAIR HFA [Concomitant]
     Active Substance: FLUTICASONE PROPIONATE\SALMETEROL XINAFOATE
  12. COUMADIN [Concomitant]
     Active Substance: WARFARIN SODIUM
     Route: 048

REACTIONS (4)
  - End stage renal disease [Unknown]
  - Tubulointerstitial nephritis [Unknown]
  - Nephrogenic anaemia [Unknown]
  - Chronic kidney disease [Unknown]

NARRATIVE: CASE EVENT DATE: 20121229
